FAERS Safety Report 18303320 (Version 1)
Quarter: 2020Q3

REPORT INFORMATION
  Report Type: Spontaneous
  Country: US (occurrence: US)
  Receive Date: 20200923
  Receipt Date: 20200923
  Transmission Date: 20201103
  Serious: No
  Sender: FDA-Public Use
  Company Number: US-BEH-2020122386

PATIENT
  Age: 30 Year
  Sex: Female

DRUGS (27)
  1. HUMATE?P [Suspect]
     Active Substance: HUMAN COAGULATION FACTOR VIII/VON WILLEBRAND FACTOR COMPLEX
     Indication: PROPHYLAXIS
     Dosage: UNK UNK, PRN
     Route: 065
  2. HEPARIN [Concomitant]
     Active Substance: HEPARIN SODIUM
  3. TRAZODONE [Concomitant]
     Active Substance: TRAZODONE HYDROCHLORIDE
  4. TRIAMTEREEN/HYDROCHLOORTHIAZIDE [Concomitant]
     Active Substance: HYDROCHLOROTHIAZIDE\TRIAMTERENE
  5. HUMATE?P [Suspect]
     Active Substance: HUMAN COAGULATION FACTOR VIII/VON WILLEBRAND FACTOR COMPLEX
     Indication: VON WILLEBRAND^S DISEASE
     Dosage: 932 INTERNATIONAL UNIT, BIW (EVERY 3 DAYS)
     Route: 065
     Dates: start: 20181222
  6. PROBIOTIC [BIFIDOBACTERIUM LACTIS] [Concomitant]
     Active Substance: BIFIDOBACTERIUM ANIMALIS LACTIS
  7. HUMATE?P [Suspect]
     Active Substance: HUMAN COAGULATION FACTOR VIII/VON WILLEBRAND FACTOR COMPLEX
     Indication: VON WILLEBRAND^S DISEASE
     Dosage: 932 INTERNATIONAL UNIT, BIW (EVERY 3 DAYS)
     Route: 065
     Dates: start: 20181222
  8. DEXTROAMPHETAMINE [DEXAMFETAMINE SULFATE] [Concomitant]
     Active Substance: DEXTROAMPHETAMINE SULFATE
  9. ATENOLOL. [Concomitant]
     Active Substance: ATENOLOL
  10. COENZYME Q10 [Concomitant]
     Active Substance: DIETARY SUPPLEMENT\UBIDECARENONE
  11. SPIRONOLACTON [Concomitant]
     Active Substance: SPIRONOLACTONE
  12. TRIAMTERENE. [Concomitant]
     Active Substance: TRIAMTERENE
  13. B?COMPLEX [VITAMIN B COMPLEX] [Concomitant]
  14. POTASSIUM CHLORIDE. [Concomitant]
     Active Substance: POTASSIUM CHLORIDE
  15. TOPAMAX [Concomitant]
     Active Substance: TOPIRAMATE
  16. VITAMIN B12 [Concomitant]
     Active Substance: CYANOCOBALAMIN
  17. HUMATE?P [Suspect]
     Active Substance: HUMAN COAGULATION FACTOR VIII/VON WILLEBRAND FACTOR COMPLEX
     Indication: PROPHYLAXIS
     Dosage: UNK UNK, PRN
     Route: 065
  18. BD POSIFLUSH [Concomitant]
  19. FEROSUL [Concomitant]
     Active Substance: FERROUS SULFATE
  20. KLOR?CON [Concomitant]
     Active Substance: POTASSIUM CHLORIDE
  21. OMEPRAZOLE. [Concomitant]
     Active Substance: OMEPRAZOLE
  22. TRILIPIX [Concomitant]
     Active Substance: FENOFIBRIC ACID
  23. NORETHIN [Concomitant]
  24. MULTIVITAMIN WITH FLUORIDE [Concomitant]
     Active Substance: .ALPHA.-TOCOPHEROL\.ALPHA.-TOCOPHEROL ACETATE\.ALPHA.-TOCOPHEROL ACETATE, DL-\ASCORBIC ACID\CHOLECALCIFEROL\COBALAMIN\CYANOCOBALAMIN\FLUORIDE ION\FOLIC ACID\NIACIN\NIACINAMIDE\PYRIDOXINE\PYRIDOXINE HYDROCHLORIDE\RIBOFLAVIN\SODIUM ASCORBATE\SODIUM FLUORIDE\THIAMINE\THIAMINE MONONITRATE\VITAMIN A\VITA
  25. SERTRALINE [Concomitant]
     Active Substance: SERTRALINE HYDROCHLORIDE
  26. SYNTHROID [Concomitant]
     Active Substance: LEVOTHYROXINE SODIUM
  27. TRILEPTAL [Concomitant]
     Active Substance: OXCARBAZEPINE

REACTIONS (2)
  - Inappropriate schedule of product administration [Recovered/Resolved]
  - No adverse event [Recovered/Resolved]

NARRATIVE: CASE EVENT DATE: 202007
